FAERS Safety Report 10339929 (Version 13)
Quarter: 2017Q1

REPORT INFORMATION
  Report Type: Report from Study
  Country: US (occurrence: US)
  Receive Date: 20140724
  Receipt Date: 20170316
  Transmission Date: 20170428
  Serious: Yes (Hospitalization, Other)
  Sender: FDA-Public Use
  Company Number: US-SA-2013SA128157

PATIENT
  Age: 63 Year
  Sex: Female

DRUGS (16)
  1. RESTORIL [Concomitant]
     Active Substance: TEMAZEPAM
  2. BUPROPION HYDROCHLORIDE. [Concomitant]
     Active Substance: BUPROPION HYDROCHLORIDE
     Route: 048
  3. AUBAGIO [Suspect]
     Active Substance: TERIFLUNOMIDE
     Indication: MULTIPLE SCLEROSIS
     Route: 048
     Dates: end: 20141122
  4. ACETYLSALICYLIC ACID [Concomitant]
     Active Substance: ASPIRIN
     Indication: CARDIAC FAILURE CONGESTIVE
     Dates: start: 201212, end: 20140425
  5. COPAXONE [Concomitant]
     Active Substance: GLATIRAMER ACETATE
     Route: 058
  6. AUBAGIO [Suspect]
     Active Substance: TERIFLUNOMIDE
     Indication: MULTIPLE SCLEROSIS
     Route: 048
     Dates: start: 20141028
  7. ATENOLOL. [Concomitant]
     Active Substance: ATENOLOL
     Indication: HYPERTENSION
  8. LISINOPRIL. [Concomitant]
     Active Substance: LISINOPRIL
  9. AUBAGIO [Suspect]
     Active Substance: TERIFLUNOMIDE
     Indication: MULTIPLE SCLEROSIS
     Route: 048
     Dates: start: 201404
  10. BUPROPION HYDROCHLORIDE. [Concomitant]
     Active Substance: BUPROPION HYDROCHLORIDE
     Route: 048
  11. AUBAGIO [Suspect]
     Active Substance: TERIFLUNOMIDE
     Indication: MULTIPLE SCLEROSIS
     Route: 048
     Dates: start: 201404
  12. NUVIGIL [Concomitant]
     Active Substance: ARMODAFINIL
     Route: 048
  13. AUBAGIO [Suspect]
     Active Substance: TERIFLUNOMIDE
     Indication: MULTIPLE SCLEROSIS
     Route: 048
     Dates: start: 2012
  14. AUBAGIO [Suspect]
     Active Substance: TERIFLUNOMIDE
     Indication: MULTIPLE SCLEROSIS
     Route: 048
     Dates: end: 20170305
  15. ENBREL [Concomitant]
     Active Substance: ETANERCEPT
  16. PLAVIX [Concomitant]
     Active Substance: CLOPIDOGREL BISULFATE

REACTIONS (13)
  - Weight gain poor [Unknown]
  - Diarrhoea [Recovered/Resolved]
  - Unevaluable event [Unknown]
  - Psoriasis [Unknown]
  - Balance disorder [Unknown]
  - Abdominal pain upper [Unknown]
  - Pain [Unknown]
  - Hypertension [Unknown]
  - Off label use [Unknown]
  - Gait disturbance [Unknown]
  - Nasopharyngitis [Unknown]
  - Drug dose omission [Unknown]
  - Blindness [Unknown]
